FAERS Safety Report 4642066-X (Version None)
Quarter: 2005Q2

REPORT INFORMATION
  Report Type: 
  Country: None (occurrence: None)
  Receive Date: 20050420
  Receipt Date: 20050405
  Transmission Date: 20051028
  Serious: Yes (Hospitalization)
  Sender: FDA-Public Use
  Company Number: JP_050406284

PATIENT
  Age: 13 Year
  Sex: Female

DRUGS (1)
  1. ZYPREXA [Suspect]
     Indication: EATING DISORDER
     Dosage: 3 MG DAY
     Dates: start: 20050316, end: 20050329

REACTIONS (2)
  - RED BLOOD CELL COUNT DECREASED [None]
  - WHITE BLOOD CELL COUNT DECREASED [None]
